FAERS Safety Report 6948566-1 (Version None)
Quarter: 2010Q3

REPORT INFORMATION
  Report Type: 
  Country: None (occurrence: None)
  Receive Date: 20100828
  Receipt Date: 20091113
  Transmission Date: 20110219
  Serious: No
  Sender: FDA-Public Use
  Company Number: US-ABBOTT-09P-163-0609261-00

PATIENT
  Sex: Male
  Weight: 88.984 kg

DRUGS (3)
  1. NIASPAN [Suspect]
     Indication: HIGH DENSITY LIPOPROTEIN DECREASED
     Dates: start: 20091112, end: 20091113
  2. METFORMIN HCL [Concomitant]
     Indication: DIABETES MELLITUS
  3. GLIPIZIDE [Concomitant]
     Indication: DIABETES MELLITUS

REACTIONS (8)
  - DIZZINESS [None]
  - FEELING HOT [None]
  - LOSS OF CONSCIOUSNESS [None]
  - NAUSEA [None]
  - PRURITUS [None]
  - RASH [None]
  - SKIN BURNING SENSATION [None]
  - URTICARIA [None]
